FAERS Safety Report 6998123-6 (Version None)
Quarter: 2010Q3

REPORT INFORMATION
  Report Type: 
  Country: None (occurrence: None)
  Receive Date: 20100920
  Receipt Date: 20070925
  Transmission Date: 20110219
  Serious: Yes (Other)
  Sender: FDA-Public Use
  Company Number: US-ASTRAZENECA-2006UW27952

PATIENT
  Age: 14569 Day
  Sex: Female

DRUGS (21)
  1. SEROQUEL [Suspect]
     Indication: BIPOLAR DISORDER
     Route: 048
     Dates: start: 20040701
  2. SEROQUEL [Suspect]
     Indication: DEPRESSION
     Route: 048
     Dates: start: 20040701
  3. SEROQUEL [Suspect]
     Indication: SCHIZOPHRENIA
     Route: 048
     Dates: start: 20040701
  4. SEROQUEL [Suspect]
     Route: 048
     Dates: start: 20050306
  5. SEROQUEL [Suspect]
     Route: 048
     Dates: start: 20050306
  6. SEROQUEL [Suspect]
     Route: 048
     Dates: start: 20050306
  7. GEODON [Concomitant]
  8. RISPERDAL [Concomitant]
     Dates: start: 20060127
  9. ZYPREXA [Concomitant]
  10. DARVOCET-N 100 [Concomitant]
     Indication: ABDOMINAL PAIN
     Dosage: 100
     Dates: start: 20060101
  11. BENICAR HCT [Concomitant]
     Indication: HYPERTENSION
     Dosage: 20/12.5
     Dates: start: 20060106
  12. BENICAR [Concomitant]
     Dates: start: 20060101
  13. HYDROCHLOROTHIAZIDE [Concomitant]
     Dates: start: 20040331
  14. VICODIN/LORTAB [Concomitant]
     Indication: PAIN
     Dosage: 5-500 MG 1-2 EVERY 4-6 HRS AS NEEDED
     Dates: start: 20040324
  15. SOMA [Concomitant]
     Route: 048
     Dates: start: 20060101
  16. ADVAIR DISKUS 100/50 [Concomitant]
     Dosage: 50-250 MCG 1 PUFF TWO TIMES A DAY
     Dates: start: 20060101
  17. DUONEB [Concomitant]
     Dosage: 0.5-2.5 MG/3 ML FOUR TIMES A DAY
     Dates: start: 20060101
  18. RELAFEN [Concomitant]
     Dates: start: 20060101
  19. ZANTAC [Concomitant]
     Dates: start: 20060101
  20. ZOLOFT [Concomitant]
     Dates: start: 20060101
  21. CRESTOR [Concomitant]
     Route: 048
     Dates: start: 20060717

REACTIONS (4)
  - DIABETES MELLITUS [None]
  - DIABETES MELLITUS INADEQUATE CONTROL [None]
  - DIABETIC KETOACIDOSIS [None]
  - TYPE 2 DIABETES MELLITUS [None]
